FAERS Safety Report 8415099-5 (Version None)
Quarter: 2012Q2

REPORT INFORMATION
  Report Type: 
  Country: None (occurrence: None)
  Receive Date: 20120530
  Receipt Date: 20120518
  Transmission Date: 20120825
  Serious: No
  Sender: FDA-Public Use
  Company Number: ADR-2012-00964

PATIENT
  Age: 9 Year
  Sex: Male

DRUGS (1)
  1. LIORESAL [Suspect]
     Dosage: 1000MCG/OAY

REACTIONS (4)
  - DRUG INEFFECTIVE [None]
  - HYDROCEPHALUS [None]
  - PSEUDOMENINGOCELE [None]
  - INTRACRANIAL HYPOTENSION [None]
